FAERS Safety Report 5079159-1 (Version None)
Quarter: 2006Q3

REPORT INFORMATION
  Report Type: 
  Country: None (occurrence: None)
  Receive Date: 20060814
  Receipt Date: 20060714
  Transmission Date: 20061208
  Serious: Yes (Death)
  Sender: FDA-Public Use
  Company Number: US-GLAXOSMITHKLINE-A0616336A

PATIENT
  Sex: Female

DRUGS (1)
  1. ARIXTRA [Suspect]
     Indication: HEPARIN-INDUCED THROMBOCYTOPENIA
     Route: 058

REACTIONS (3)
  - CARDIAC FAILURE [None]
  - COLON CANCER METASTATIC [None]
  - MALIGNANT NEOPLASM PROGRESSION [None]
